FAERS Safety Report 14705118 (Version 1)
Quarter: 2018Q2

REPORT INFORMATION
  Report Type: Spontaneous
  Country: CN (occurrence: CN)
  Receive Date: 20180402
  Receipt Date: 20180402
  Transmission Date: 20180711
  Serious: Yes (Other)
  Sender: FDA-Public Use
  Company Number: CN-PFIZER INC-2018132317

PATIENT
  Age: 49 Year
  Sex: Male
  Weight: 73 kg

DRUGS (3)
  1. PIPERACILLIN/TAZOBACTAM [Suspect]
     Active Substance: PIPERACILLIN SODIUM\TAZOBACTAM SODIUM
     Indication: INFECTION
     Dosage: 4.5 G, 3X/DAY
     Route: 041
     Dates: start: 20171219, end: 20180103
  2. LINEZOLID. [Suspect]
     Active Substance: LINEZOLID
     Dosage: 0.6 G, 2X/DAY
     Route: 041
     Dates: start: 20171214, end: 20171225
  3. LINEZOLID. [Suspect]
     Active Substance: LINEZOLID
     Indication: INFECTION
     Dosage: 0.6 G, 1X/DAY
     Route: 041
     Dates: start: 20171214, end: 20171225

REACTIONS (5)
  - Clostridium difficile colitis [Unknown]
  - Pseudomembranous colitis [None]
  - Diarrhoea [Recovered/Resolved]
  - Fatigue [Unknown]
  - Decreased appetite [Unknown]

NARRATIVE: CASE EVENT DATE: 201712
